FAERS Safety Report 5419550-4 (Version None)
Quarter: 2007Q3

REPORT INFORMATION
  Report Type: 
  Country: None (occurrence: None)
  Receive Date: 20070820
  Receipt Date: 20070808
  Transmission Date: 20080115
  Serious: Yes (Hospitalization, Disabling)
  Sender: FDA-Public Use
  Company Number: EG-ROCHE-510949

PATIENT
  Age: 40 Year
  Sex: Female

DRUGS (1)
  1. XENICAL [Suspect]
     Indication: OBESITY
     Dosage: DOSE FREQUENCY: ONCE DAILY.
     Route: 065
     Dates: end: 20060101

REACTIONS (1)
  - GASTROINTESTINAL DISORDER [None]
